FAERS Safety Report 9116193 (Version 1)
Quarter: 2013Q1

REPORT INFORMATION
  Report Type: Spontaneous
  Country: US (occurrence: US)
  Receive Date: 20130225
  Receipt Date: 20130225
  Transmission Date: 20140127
  Serious: Yes (Other)
  Sender: FDA-Public Use
  Company Number: US-PFIZER INC-2013064600

PATIENT
  Age: 58 Year
  Sex: Male
  Weight: 108.84 kg

DRUGS (1)
  1. VIAGRA [Suspect]
     Indication: ERECTILE DYSFUNCTION
     Dosage: 100 MG, AS NEEDED
     Route: 048

REACTIONS (5)
  - Myopathy [Unknown]
  - Feeling hot [Unknown]
  - Flushing [Unknown]
  - Suspected counterfeit product [Unknown]
  - Drug ineffective [Unknown]
